FAERS Safety Report 14623156 (Version 2)
Quarter: 2018Q2

REPORT INFORMATION
  Report Type: Report from Study
  Country: None (occurrence: GD)
  Receive Date: 20180311
  Receipt Date: 20180417
  Transmission Date: 20180711
  Serious: Yes (Hospitalization, Other)
  Sender: FDA-Public Use
  Company Number: CA-ABBVIE-18S-028-2282351-00

PATIENT
  Sex: Female

DRUGS (2)
  1. LUPRON DEPOT [Suspect]
     Active Substance: LEUPROLIDE ACETATE
     Indication: UTERINE LEIOMYOMA
     Route: 030
     Dates: start: 20171031, end: 20180118
  2. LUPRON DEPOT [Suspect]
     Active Substance: LEUPROLIDE ACETATE
     Dosage: THE PATIENT MISSED A DOSE OF 15 FEB 2018
     Route: 030

REACTIONS (2)
  - Cerebrovascular accident [Unknown]
  - Haemorrhage [Not Recovered/Not Resolved]
